FAERS Safety Report 21703497 (Version 1)
Quarter: 2022Q4

REPORT INFORMATION
  Report Type: Spontaneous
  Country: SG (occurrence: None)
  Receive Date: 20221209
  Receipt Date: 20221209
  Transmission Date: 20230113
  Serious: Yes (Other)
  Sender: FDA-Public Use
  Company Number: SG-ROCHE-3167381

PATIENT
  Age: 66 Year
  Sex: Female

DRUGS (2)
  1. PERJETA [Suspect]
     Active Substance: PERTUZUMAB
     Indication: Breast cancer
     Route: 065
  2. HERCEPTIN [Suspect]
     Active Substance: TRASTUZUMAB
     Indication: Breast cancer
     Route: 065

REACTIONS (15)
  - Disease recurrence [Unknown]
  - Discomfort [Unknown]
  - Cough [Unknown]
  - Oropharyngeal pain [Unknown]
  - Brain neoplasm [Unknown]
  - Breast cancer metastatic [Unknown]
  - Neoplasm progression [Unknown]
  - Pyrexia [Unknown]
  - COVID-19 [Unknown]
  - Rhinorrhoea [Unknown]
  - Headache [Unknown]
  - Fatigue [Unknown]
  - Immune system disorder [Unknown]
  - Hypersensitivity [Unknown]
  - Asthenia [Unknown]
